FAERS Safety Report 8015894-0 (Version None)
Quarter: 2011Q4

REPORT INFORMATION
  Report Type: 
  Country: None (occurrence: None)
  Receive Date: 20111230
  Receipt Date: 20111219
  Transmission Date: 20120403
  Serious: Yes (Death)
  Sender: FDA-Public Use
  Company Number: US-PFIZER INC-2011311701

PATIENT
  Age: 55 Year
  Sex: Male

DRUGS (2)
  1. DOXEPIN HCL [Suspect]
     Route: 048
  2. TRAMADOL HCL [Suspect]
     Route: 048

REACTIONS (1)
  - DRUG ABUSE [None]
